APPROVED DRUG PRODUCT: CETROTIDE
Active Ingredient: CETRORELIX ACETATE
Strength: EQ 0.25MG BASE/VIAL
Dosage Form/Route: POWDER;SUBCUTANEOUS
Application: N021197 | Product #001 | TE Code: AP
Applicant: EMD SERONO INC
Approved: Aug 11, 2000 | RLD: Yes | RS: Yes | Type: RX